FAERS Safety Report 21965612 (Version 3)
Quarter: 2023Q1

REPORT INFORMATION
  Report Type: Report from Study
  Country: FR (occurrence: FR)
  Receive Date: 20230208
  Receipt Date: 20230321
  Transmission Date: 20230418
  Serious: Yes (Hospitalization, Other)
  Sender: FDA-Public Use
  Company Number: FR-002147023-NVSC2022FR238255

PATIENT
  Age: 72 Year
  Sex: Male
  Weight: 75 kg

DRUGS (3)
  1. PLUVICTO [Suspect]
     Active Substance: LUTETIUM LU-177 VIPIVOTIDE TETRAXETAN
     Indication: Hormone-refractory prostate cancer
     Dosage: 7013 MBQ (ONCE, CYCLE 1)
     Route: 042
     Dates: start: 20220929, end: 20220929
  2. PLUVICTO [Suspect]
     Active Substance: LUTETIUM LU-177 VIPIVOTIDE TETRAXETAN
     Dosage: 6008 MBQ (ONCE, CYCLE 2)
     Route: 065
     Dates: start: 20221110, end: 20221110
  3. PLUVICTO [Suspect]
     Active Substance: LUTETIUM LU-177 VIPIVOTIDE TETRAXETAN
     Dosage: 5890 MBQ (ONCE, CYCLE 3)
     Route: 065
     Dates: start: 20221222, end: 20221222

REACTIONS (8)
  - General physical health deterioration [Unknown]
  - Metastases to bone [Unknown]
  - Metastases to pleura [Unknown]
  - Metastases to lung [Unknown]
  - Hormone-refractory prostate cancer [Unknown]
  - Malignant neoplasm progression [Unknown]
  - Anaemia [Recovered/Resolved]
  - Meningeal thickening [Unknown]

NARRATIVE: CASE EVENT DATE: 20221010
